FAERS Safety Report 19739466 (Version 1)
Quarter: 2021Q3

REPORT INFORMATION
  Report Type: Spontaneous
  Country: US (occurrence: US)
  Receive Date: 20210820
  Receipt Date: 20210820
  Transmission Date: 20211014
  Serious: No
  Sender: FDA-Public Use
  Company Number: None

PATIENT

DRUGS (1)
  1. VAGIFEM [Suspect]
     Active Substance: ESTRADIOL

REACTIONS (2)
  - Transcription medication error [None]
  - Intercepted product dispensing error [None]
